FAERS Safety Report 9383695 (Version 1)
Quarter: 2013Q3

REPORT INFORMATION
  Report Type: Spontaneous
  Country: US (occurrence: US)
  Receive Date: 20130704
  Receipt Date: 20130704
  Transmission Date: 20140515
  Serious: No
  Sender: FDA-Public Use
  Company Number: US-009507513-1306USA012744

PATIENT
  Sex: Female

DRUGS (2)
  1. JANUMET [Suspect]
     Indication: DIABETES MELLITUS
     Dosage: ONE TABLET TWICE A DAY
     Route: 048
     Dates: start: 201206
  2. JANUMET [Suspect]
     Dosage: UNK
     Route: 048

REACTIONS (1)
  - Blood glucose increased [Recovered/Resolved]
